FAERS Safety Report 7560234-4 (Version None)
Quarter: 2011Q2

REPORT INFORMATION
  Report Type: 
  Country: None (occurrence: None)
  Receive Date: 20110614
  Receipt Date: 20110531
  Transmission Date: 20111010
  Serious: Yes (Life-Threatening, Hospitalization, Other)
  Sender: FDA-Public Use
  Company Number: 11-043

PATIENT
  Age: 16 Year
  Sex: Female

DRUGS (1)
  1. AMLODIPINE [Suspect]
     Indication: SUICIDE ATTEMPT
     Dosage: 500 MG;X1;PO
     Route: 048

REACTIONS (15)
  - BLOOD PRESSURE DECREASED [None]
  - ALANINE AMINOTRANSFERASE INCREASED [None]
  - RESPIRATORY ARREST [None]
  - LEUKOCYTOSIS [None]
  - AORTIC VALVE INCOMPETENCE [None]
  - EJECTION FRACTION DECREASED [None]
  - NO THERAPEUTIC RESPONSE [None]
  - PULMONARY OEDEMA [None]
  - SINUS TACHYCARDIA [None]
  - MITRAL VALVE INCOMPETENCE [None]
  - METABOLIC ALKALOSIS [None]
  - URINE OUTPUT DECREASED [None]
  - INCORRECT DOSE ADMINISTERED [None]
  - SUICIDE ATTEMPT [None]
  - ASPARTATE AMINOTRANSFERASE INCREASED [None]
